FAERS Safety Report 7723045-2 (Version None)
Quarter: 2011Q3

REPORT INFORMATION
  Report Type: 
  Country: None (occurrence: None)
  Receive Date: 20110901
  Receipt Date: 20101004
  Transmission Date: 20111222
  Serious: No
  Sender: FDA-Public Use
  Company Number: US-BAYER-201035736NA

PATIENT
  Sex: Male

DRUGS (2)
  1. CIPROFLOXACIN [Suspect]
     Indication: PROSTATITIS
     Dosage: UNK UNK, QD
  2. LYRICA [Suspect]
     Indication: HEADACHE
     Dosage: 450 MG, QD

REACTIONS (2)
  - MALE SEXUAL DYSFUNCTION [None]
  - HEADACHE [None]
